FAERS Safety Report 7199123-6 (Version None)
Quarter: 2010Q4

REPORT INFORMATION
  Report Type: 
  Country: None (occurrence: None)
  Receive Date: 20101126
  Receipt Date: 20100602
  Transmission Date: 20110411
  Serious: Yes (Hospitalization)
  Sender: FDA-Public Use
  Company Number: CIP10001154

PATIENT
  Age: 71 Year
  Sex: Female
  Weight: 72.7 kg

DRUGS (4)
  1. ACTONEL [Suspect]
     Indication: OSTEOPOROSIS
     Dosage: 35 MG ONCE WEEKLY, ORAL
     Route: 048
     Dates: start: 20021201
  2. ERGOCALCIFEROL [Concomitant]
  3. VYTORIN [Concomitant]
  4. ZANTAC [Concomitant]

REACTIONS (2)
  - FALL [None]
  - FEMORAL NECK FRACTURE [None]
